FAERS Safety Report 17257458 (Version 11)
Quarter: 2020Q1

REPORT INFORMATION
  Report Type: Report from Study
  Country: TW (occurrence: TW)
  Receive Date: 20200110
  Receipt Date: 20200330
  Transmission Date: 20200409
  Serious: Yes (Hospitalization)
  Sender: FDA-Public Use
  Company Number: TW-EISAI MEDICAL RESEARCH-EC-2020-068273

PATIENT
  Age: 59 Year
  Sex: Female
  Weight: 38 kg

DRUGS (11)
  1. PEMBROLIZUMAB. [Suspect]
     Active Substance: PEMBROLIZUMAB
     Indication: ENDOMETRIAL CANCER
     Route: 041
     Dates: start: 20190801, end: 20191209
  2. METHACIN [Concomitant]
     Dates: start: 20190701
  3. LENVATINIB [Suspect]
     Active Substance: LENVATINIB
     Indication: ENDOMETRIAL CANCER
     Dosage: STARTED AT 20 MILLIGRAM, FLUCTUATED DOSES
     Route: 048
     Dates: start: 20190801, end: 20200101
  4. LENVATINIB [Suspect]
     Active Substance: LENVATINIB
     Route: 048
     Dates: start: 20200213
  5. CELEBREX [Concomitant]
     Active Substance: CELECOXIB
     Dates: start: 20190701
  6. PEMBROLIZUMAB. [Suspect]
     Active Substance: PEMBROLIZUMAB
     Route: 041
     Dates: start: 20200102, end: 20200102
  7. PEMBROLIZUMAB. [Suspect]
     Active Substance: PEMBROLIZUMAB
     Route: 041
     Dates: start: 20200303
  8. FILGRASTIM [Concomitant]
     Active Substance: FILGRASTIM
     Dates: start: 20191223, end: 20191223
  9. PARAMOL [Concomitant]
     Dates: start: 20190724, end: 20191230
  10. LENVATINIB [Suspect]
     Active Substance: LENVATINIB
     Route: 048
     Dates: start: 20200102, end: 20200105
  11. RINDERON V [Concomitant]
     Active Substance: BETAMETHASONE VALERATE
     Dates: start: 20200103, end: 20200110

REACTIONS (1)
  - Type 1 diabetes mellitus [Recovered/Resolved with Sequelae]

NARRATIVE: CASE EVENT DATE: 20200104
